FAERS Safety Report 9843031 (Version 1)
Quarter: 2013Q4

REPORT INFORMATION
  Report Type: Spontaneous
  Country: US (occurrence: None)
  Receive Date: 20131223
  Receipt Date: 20131223
  Transmission Date: 20140711
  Serious: Yes (Other)
  Sender: FDA-Public Use
  Company Number: 219040LEO

PATIENT
  Age: 56 Year
  Sex: Male

DRUGS (4)
  1. PICATO (0.015 %, GEL) [Suspect]
     Indication: ACTINIC KERATOSIS
     Dates: start: 20120913, end: 20120915
  2. ATORVASTATIN  (ATORVASTATIN) [Concomitant]
  3. LOTREL (LOTREL /01289101/) [Concomitant]
  4. PROTONIX (PANTOPRAZOLE) [Concomitant]

REACTIONS (6)
  - Application site pruritus [None]
  - Formication [None]
  - Headache [None]
  - Erythema [None]
  - Skin exfoliation [None]
  - Hyperhidrosis [None]
